FAERS Safety Report 10450969 (Version 2)
Quarter: 2014Q4

REPORT INFORMATION
  Report Type: Spontaneous
  Country: AE (occurrence: AE)
  Receive Date: 20140912
  Receipt Date: 20141010
  Transmission Date: 20150528
  Serious: Yes (Other)
  Sender: FDA-Public Use
  Company Number: AE-PFIZER INC-2014249084

PATIENT
  Sex: Female

DRUGS (1)
  1. ZOLOFT [Suspect]
     Active Substance: SERTRALINE HYDROCHLORIDE
     Indication: DEPRESSION
     Dosage: 50 MG, DAILY
     Dates: start: 20130821

REACTIONS (12)
  - Decreased interest [Unknown]
  - Drug ineffective [Unknown]
  - Frustration [Unknown]
  - Cognitive disorder [Unknown]
  - Job dissatisfaction [Unknown]
  - Feeling abnormal [Unknown]
  - Social avoidant behaviour [Unknown]
  - Alopecia [Recovering/Resolving]
  - Insomnia [Unknown]
  - Personality disorder [Not Recovered/Not Resolved]
  - Panic attack [Unknown]
  - Psychological trauma [Not Recovered/Not Resolved]

NARRATIVE: CASE EVENT DATE: 2013
